FAERS Safety Report 8018332-7 (Version None)
Quarter: 2012Q1

REPORT INFORMATION
  Report Type: 
  Country: None (occurrence: None)
  Receive Date: 20120103
  Receipt Date: 20111222
  Transmission Date: 20120608
  Serious: Yes (Other)
  Sender: FDA-Public Use
  Company Number: US-BAYER-2011-058297

PATIENT
  Age: 23 Year
  Sex: Female
  Weight: 73 kg

DRUGS (4)
  1. VITAMIN C [Concomitant]
     Dosage: UNK UNK, QD
     Route: 048
  2. YASMIN [Suspect]
     Indication: CONTRACEPTION
  3. ANTIBIOTICS [Concomitant]
  4. YASMIN [Suspect]
     Indication: ACNE
     Dosage: UNK
     Dates: start: 20020101, end: 20090101

REACTIONS (10)
  - GALLBLADDER INJURY [None]
  - INJURY [None]
  - CHOLELITHIASIS [None]
  - CHOLECYSTITIS [None]
  - DYSPEPSIA [None]
  - ABDOMINAL PAIN UPPER [None]
  - GASTROINTESTINAL PAIN [None]
  - GASTROINTESTINAL DISORDER [None]
  - PAIN [None]
  - NAUSEA [None]
